FAERS Safety Report 5926701-1 (Version None)
Quarter: 2008Q4

REPORT INFORMATION
  Report Type: 
  Country: None (occurrence: None)
  Receive Date: 20081022
  Receipt Date: 20081017
  Transmission Date: 20090506
  Serious: Yes (Other)
  Sender: FDA-Public Use
  Company Number: JP-BAYER-200812446BYL

PATIENT
  Age: 68 Year
  Sex: Female
  Weight: 50 kg

DRUGS (4)
  1. ADALAT [Suspect]
     Indication: HYPERTENSION
     Dosage: TOTAL DAILY DOSE: 20 MG  UNIT DOSE: 20 MG
     Route: 048
     Dates: start: 20080125
  2. ARIXTRA [Suspect]
     Indication: THROMBOSIS PROPHYLAXIS
     Dosage: AS USED: 2.5 MG  UNIT DOSE: 2.5 MG
     Route: 058
     Dates: start: 20080325, end: 20080325
  3. BENET [Concomitant]
     Indication: OSTEOPOROSIS
     Dosage: TOTAL DAILY DOSE: 2.5 MG  UNIT DOSE: 2.5 MG
     Route: 048
     Dates: start: 20080127
  4. MAGMITT [Concomitant]
     Indication: CONSTIPATION
     Dosage: TOTAL DAILY DOSE: 990 MG  UNIT DOSE: 330 MG
     Route: 048
     Dates: start: 20080322

REACTIONS (2)
  - WOUND COMPLICATION [None]
  - WOUND HAEMORRHAGE [None]
